FAERS Safety Report 13391648 (Version 1)
Quarter: 2017Q1

REPORT INFORMATION
  Report Type: Spontaneous
  Country: US (occurrence: US)
  Receive Date: 20170331
  Receipt Date: 20170331
  Transmission Date: 20170429
  Serious: No
  Sender: FDA-Public Use
  Company Number: US-MYLANLABS-2016M1010367

PATIENT
  Sex: Male
  Weight: 86.17 kg

DRUGS (2)
  1. FENTANYL TRANSDERMAL SYSTEM [Suspect]
     Active Substance: FENTANYL
     Indication: PAIN
     Dosage: 75 ?G, QH, CHANGED Q48H
     Route: 062
     Dates: start: 2012
  2. OXYCODONE [Concomitant]
     Active Substance: OXYCODONE
     Indication: BREAKTHROUGH PAIN
     Dosage: UNK

REACTIONS (5)
  - Withdrawal syndrome [Not Recovered/Not Resolved]
  - Wrong technique in product usage process [Unknown]
  - Application site bruise [Not Recovered/Not Resolved]
  - Drug effect decreased [Not Recovered/Not Resolved]
  - Application site burn [Not Recovered/Not Resolved]

NARRATIVE: CASE EVENT DATE: 2015
